FAERS Safety Report 14573458 (Version 1)
Quarter: 2018Q1

REPORT INFORMATION
  Report Type: Spontaneous
  Country: US (occurrence: US)
  Receive Date: 20180226
  Receipt Date: 20180226
  Transmission Date: 20180509
  Serious: Yes (Other)
  Sender: FDA-Public Use
  Company Number: US-MYLANLABS-2018M1008696

PATIENT
  Sex: Female

DRUGS (1)
  1. LORAZEPAM TABLETS USP [Suspect]
     Active Substance: LORAZEPAM
     Indication: ANXIETY
     Dosage: UNK
     Route: 048
     Dates: start: 20120101

REACTIONS (6)
  - Dysgeusia [Unknown]
  - Wrong technique in product usage process [Unknown]
  - Cardiac flutter [Not Recovered/Not Resolved]
  - Anxiety [Unknown]
  - Sluggishness [Unknown]
  - Drug ineffective [Unknown]
